FAERS Safety Report 9891202 (Version 3)
Quarter: 2014Q1

REPORT INFORMATION
  Report Type: Spontaneous
  Country: AU (occurrence: AU)
  Receive Date: 20140212
  Receipt Date: 20140314
  Transmission Date: 20141002
  Serious: Yes (Hospitalization, Other)
  Sender: FDA-Public Use
  Company Number: AU-B.I. PHARMACEUTICALS,INC./RIDGEFIELD-2014-BI-05766AU

PATIENT
  Age: 89 Year
  Sex: Male
  Weight: 88 kg

DRUGS (5)
  1. PRADAXA [Suspect]
     Indication: ATRIAL FIBRILLATION
     Dosage: 220 MG
     Route: 065
     Dates: start: 2012, end: 201310
  2. LIPITOR [Concomitant]
     Route: 065
  3. OLMETEC [Concomitant]
     Route: 065
  4. LASIX [Concomitant]
     Dosage: DOSE PER APPLICATION: ON AND OFF
     Route: 065
  5. MINIPRESS [Concomitant]
     Route: 065

REACTIONS (4)
  - Gastric ulcer haemorrhage [Recovered/Resolved]
  - Pulmonary embolism [Unknown]
  - Dyspnoea [Unknown]
  - Gastrointestinal ulcer [Unknown]
